FAERS Safety Report 21855436 (Version 1)
Quarter: 2023Q1

REPORT INFORMATION
  Report Type: Spontaneous
  Country: US (occurrence: None)
  Receive Date: 20230112
  Receipt Date: 20230112
  Transmission Date: 20230417
  Serious: Yes (Disabling)
  Sender: FDA-Public Use
  Company Number: None

PATIENT
  Age: 76 Year
  Sex: Male
  Weight: 108 kg

DRUGS (1)
  1. CREON [Suspect]
     Active Substance: PANCRELIPASE AMYLASE\PANCRELIPASE LIPASE\PANCRELIPASE PROTEASE
     Indication: Pancreatic failure

REACTIONS (8)
  - Diarrhoea [None]
  - Gout [None]
  - Therapy cessation [None]
  - Pain in extremity [None]
  - Joint swelling [None]
  - Tendonitis [None]
  - Peripheral circulatory failure [None]
  - Lymphatic disorder [None]

NARRATIVE: CASE EVENT DATE: 20220713
